FAERS Safety Report 6749938-0 (Version None)
Quarter: 2010Q2

REPORT INFORMATION
  Report Type: 
  Country: None (occurrence: None)
  Receive Date: 20100601
  Receipt Date: 20100521
  Transmission Date: 20101027
  Serious: Yes (Other)
  Sender: FDA-Public Use
  Company Number: ES-JNJFOC-20100509750

PATIENT
  Age: 47 Year
  Sex: Male

DRUGS (8)
  1. DARUNAVIR [Suspect]
     Indication: HIV INFECTION
     Route: 048
  2. KIVEXA [Concomitant]
     Indication: DRUG USE FOR UNKNOWN INDICATION
  3. KONAKION [Concomitant]
     Indication: DRUG USE FOR UNKNOWN INDICATION
  4. EVENING PRIMROSE OIL [Concomitant]
     Indication: DRUG USE FOR UNKNOWN INDICATION
  5. LORMETAZEPAM [Concomitant]
     Indication: DRUG USE FOR UNKNOWN INDICATION
  6. NOCTAMID [Concomitant]
     Indication: DRUG USE FOR UNKNOWN INDICATION
  7. HUMATIN [Concomitant]
     Indication: DRUG USE FOR UNKNOWN INDICATION
  8. NORVIR [Concomitant]
     Indication: DRUG USE FOR UNKNOWN INDICATION

REACTIONS (2)
  - DRUG ERUPTION [None]
  - ERYTHEMA MULTIFORME [None]
